FAERS Safety Report 16117065 (Version 8)
Quarter: 2020Q1

REPORT INFORMATION
  Report Type: Spontaneous
  Country: US (occurrence: US)
  Receive Date: 20190326
  Receipt Date: 20200316
  Transmission Date: 20200409
  Serious: Yes (Other)
  Sender: FDA-Public Use
  Company Number: US-PFIZER INC-2019033708

PATIENT
  Age: 5 Day
  Sex: Male
  Weight: 6.89 kg

DRUGS (10)
  1. BACTRIM [Concomitant]
     Active Substance: SULFAMETHOXAZOLE\TRIMETHOPRIM
     Indication: PNEUMOCYSTIS JIROVECII PNEUMONIA
     Dosage: UNK UNK, 2X/DAY
  2. RAPAMUNE [Suspect]
     Active Substance: SIROLIMUS
     Dosage: 0.1 ML, UNK
     Route: 048
  3. RAPAMUNE [Suspect]
     Active Substance: SIROLIMUS
     Dosage: 0.05 ML, UNK
     Route: 048
  4. RAPAMUNE [Suspect]
     Active Substance: SIROLIMUS
     Dosage: 0.6 ML, DAILY (TAKE 0.3 ML PO Q (PER ORAL EVERY) 12 HRS, 90 DAY SUPPLY)
     Route: 048
  5. RAPAMUNE [Suspect]
     Active Substance: SIROLIMUS
     Indication: ANGIOSARCOMA
     Dosage: 0.2 MG, 2X/DAY
     Route: 048
     Dates: start: 20190113
  6. RAPAMUNE [Suspect]
     Active Substance: SIROLIMUS
     Dosage: 0.2 ML, 2X/DAY
     Route: 048
  7. RAPAMUNE [Suspect]
     Active Substance: SIROLIMUS
     Dosage: 0.1 ML, UNK
     Route: 048
  8. RAPAMUNE [Suspect]
     Active Substance: SIROLIMUS
     Dosage: 0.08 ML, UNK
     Route: 048
  9. RAPAMUNE [Suspect]
     Active Substance: SIROLIMUS
     Dosage: 1 ML, UNK
     Route: 048
  10. RAPAMUNE [Suspect]
     Active Substance: SIROLIMUS
     Dosage: 0.15 ML, 2X/DAY [9:00AM AND 9:00PM]
     Route: 048

REACTIONS (13)
  - Wound infection [Unknown]
  - Metabolic disorder [Unknown]
  - Drug effective for unapproved indication [Unknown]
  - Product use issue [Unknown]
  - Off label use [Unknown]
  - Wound [Unknown]
  - Drug level below therapeutic [Unknown]
  - Rash neonatal [Recovering/Resolving]
  - Frequent bowel movements [Unknown]
  - Product use in unapproved indication [Unknown]
  - Intentional product misuse [Unknown]
  - Wrong technique in product usage process [Unknown]
  - Wound complication [Unknown]
